FAERS Safety Report 9544028 (Version 1)
Quarter: 2013Q3

REPORT INFORMATION
  Report Type: Spontaneous
  Country: CA (occurrence: CA)
  Receive Date: 20130923
  Receipt Date: 20130923
  Transmission Date: 20140515
  Serious: Yes (Hospitalization)
  Sender: FDA-Public Use
  Company Number: CA-VERTEX PHARMACEUTICALS INC-2013-009828

PATIENT
  Sex: Male

DRUGS (6)
  1. INCIVEK [Suspect]
     Indication: HEPATITIS C
     Dosage: 750 MG, UNK
     Dates: start: 20130110, end: 20130804
  2. RIBAVIRIN [Suspect]
     Indication: HEPATITIS C
     Dosage: 1200 MG, UNK
     Dates: start: 20130110, end: 20130827
  3. PEGASYS [Suspect]
     Indication: HEPATITIS C
     Dosage: 180 ?G, UNK
     Dates: start: 20130110, end: 20130827
  4. CIPRALEX [Concomitant]
  5. MILK THISTLE [Concomitant]
  6. VITAMIN C [Concomitant]

REACTIONS (2)
  - Escherichia infection [Unknown]
  - Staphylococcal infection [Unknown]
